FAERS Safety Report 16464809 (Version 6)
Quarter: 2025Q2

REPORT INFORMATION
  Report Type: Spontaneous
  Country: BR (occurrence: BR)
  Receive Date: 20190621
  Receipt Date: 20250512
  Transmission Date: 20250716
  Serious: Yes (Hospitalization)
  Sender: BIOGEN
  Company Number: BR-BIOGEN-2019BI00752008

PATIENT
  Sex: Female
  Weight: 47 kg

DRUGS (17)
  1. AVONEX [Suspect]
     Active Substance: INTERFERON BETA-1A
     Indication: Multiple sclerosis
     Route: 050
  2. AVONEX [Suspect]
     Active Substance: INTERFERON BETA-1A
  3. AVONEX [Suspect]
     Active Substance: INTERFERON BETA-1A
  4. AVONEX [Suspect]
     Active Substance: INTERFERON BETA-1A
  5. AVONEX [Suspect]
     Active Substance: INTERFERON BETA-1A
     Indication: Multiple sclerosis
     Route: 050
     Dates: start: 200305, end: 2006
  6. AVONEX [Suspect]
     Active Substance: INTERFERON BETA-1A
     Route: 050
     Dates: start: 2006, end: 2012
  7. AVONEX [Suspect]
     Active Substance: INTERFERON BETA-1A
  8. AVONEX [Suspect]
     Active Substance: INTERFERON BETA-1A
  9. AVONEX [Suspect]
     Active Substance: INTERFERON BETA-1A
  10. AVONEX [Suspect]
     Active Substance: INTERFERON BETA-1A
  11. AVONEX [Suspect]
     Active Substance: INTERFERON BETA-1A
  12. AVONEX [Suspect]
     Active Substance: INTERFERON BETA-1A
  13. AVONEX [Suspect]
     Active Substance: INTERFERON BETA-1A
  14. AVONEX [Suspect]
     Active Substance: INTERFERON BETA-1A
  15. AVONEX [Suspect]
     Active Substance: INTERFERON BETA-1A
  16. AVONEX [Suspect]
     Active Substance: INTERFERON BETA-1A
  17. AVONEX [Suspect]
     Active Substance: INTERFERON BETA-1A

REACTIONS (7)
  - Neuralgia [Unknown]
  - Multiple sclerosis relapse [Not Recovered/Not Resolved]
  - Dizziness [Recovered/Resolved]
  - Drug ineffective [Recovered/Resolved]
  - Product administered at inappropriate site [Unknown]
  - Multiple sclerosis [Unknown]
  - Off label use [Unknown]

NARRATIVE: CASE EVENT DATE: 20090101
